FAERS Safety Report 9836003 (Version 1)
Quarter: 2014Q1

REPORT INFORMATION
  Report Type: Spontaneous
  Country: SY (occurrence: SY)
  Receive Date: 20140122
  Receipt Date: 20140122
  Transmission Date: 20141002
  Serious: Yes (Other)
  Sender: FDA-Public Use
  Company Number: PHHY2014SY007007

PATIENT
  Age: 48 Year
  Sex: Male

DRUGS (1)
  1. LEPONEX [Suspect]
     Dosage: 100 MG, QD

REACTIONS (1)
  - Acute myeloid leukaemia [Unknown]
